FAERS Safety Report 20345934 (Version 1)
Quarter: 2022Q1

REPORT INFORMATION
  Report Type: Report from Study
  Country: TW (occurrence: TW)
  Receive Date: 20220118
  Receipt Date: 20220118
  Transmission Date: 20220423
  Serious: Yes (Life-Threatening, Other)
  Sender: FDA-Public Use
  Company Number: TW-PFIZER INC-202200046795

PATIENT
  Age: 71 Year

DRUGS (11)
  1. METHOTREXATE [Suspect]
     Active Substance: METHOTREXATE
     Indication: Ocular lymphoma
     Dosage: 2X/WEEK (INTRAVITREAL)
  2. METHOTREXATE [Suspect]
     Active Substance: METHOTREXATE
     Dosage: WEEKLY (INTRAVITREAL)
  3. METHOTREXATE [Suspect]
     Active Substance: METHOTREXATE
     Dosage: EVERY 2 WEEKS (INTRAVITREAL)
  4. METHOTREXATE [Suspect]
     Active Substance: METHOTREXATE
     Dosage: MONTHLY (INTRAVITREAL)
  5. METHOTREXATE [Suspect]
     Active Substance: METHOTREXATE
     Dosage: 8000 MG/M2 (HDMTX)
  6. METHOTREXATE [Suspect]
     Active Substance: METHOTREXATE
     Dosage: 8000 MG/M2 (HDMTX)
  7. RITUXIMAB [Concomitant]
     Active Substance: RITUXIMAB
     Dosage: 500 MG
  8. CYCLOPHOSPHAMIDE [Concomitant]
     Active Substance: CYCLOPHOSPHAMIDE
     Dosage: UNK
  9. DOXORUBICIN [Concomitant]
     Active Substance: DOXORUBICIN
     Dosage: UNK
  10. VINCRISTINE [Concomitant]
     Active Substance: VINCRISTINE
     Dosage: UNK
  11. PREDNISOLONE [Concomitant]
     Active Substance: PREDNISOLONE
     Dosage: UNK

REACTIONS (1)
  - Punctate keratitis [Unknown]
